FAERS Safety Report 16323273 (Version 3)
Quarter: 2019Q4

REPORT INFORMATION
  Report Type: Spontaneous
  Country: US (occurrence: US)
  Receive Date: 20190517
  Receipt Date: 20191206
  Transmission Date: 20200122
  Serious: Yes (Other)
  Sender: FDA-Public Use
  Company Number: US-ROCHE-2318173

PATIENT
  Sex: Female

DRUGS (2)
  1. RITUXAN [Suspect]
     Active Substance: RITUXIMAB
     Indication: SYSTEMIC LUPUS ERYTHEMATOSUS
     Route: 041
     Dates: start: 20190109
  2. RITUXAN [Suspect]
     Active Substance: RITUXIMAB
     Dosage: FORM: 500MG/50ML?WEEK 0 AND 2, ONGOING: YES
     Route: 041
     Dates: start: 20190108

REACTIONS (5)
  - Headache [Recovered/Resolved]
  - Gastric disorder [Recovered/Resolved]
  - Systemic lupus erythematosus [Recovered/Resolved]
  - Intentional product use issue [Unknown]
  - Off label use [Unknown]
